FAERS Safety Report 20817366 (Version 1)
Quarter: 2022Q2

REPORT INFORMATION
  Report Type: Other
  Country: GB (occurrence: GB)
  Receive Date: 20220512
  Receipt Date: 20220512
  Transmission Date: 20220721
  Serious: Yes (Other)
  Sender: FDA-Public Use
  Company Number: GB-CELLTRION INC.-2022GB006093

PATIENT

DRUGS (7)
  1. INFLIXIMAB [Suspect]
     Active Substance: INFLIXIMAB
     Indication: Product used for unknown indication
     Dosage: ONE INFUSION ONLY GIVEN AND THEN STOPPED ; ;/ (ADDITIONAL INFO: ROUTE:)
     Dates: start: 20220226
  2. INFLIXIMAB [Suspect]
     Active Substance: INFLIXIMAB
     Dosage: ONE INFUSION ONLY GIVEN AND THEN STOPPED ; ;/ (ADDITIONAL INFO: ROUTE:)
     Dates: start: 20220226
  3. INFLIXIMAB [Suspect]
     Active Substance: INFLIXIMAB
     Dosage: ONE INFUSION ONLY GIVEN AND THEN STOPPED ; ;/ (ADDITIONAL INFO: ROUTE:)
     Dates: start: 20220226
  4. ADALIMUMAB [Suspect]
     Active Substance: ADALIMUMAB
     Indication: Product used for unknown indication
     Dosage: ADDITIONAL INFO: ROUTE:
  5. CIPROFLOXACIN [Concomitant]
     Active Substance: CIPROFLOXACIN
     Dosage: ADDITIONAL INFO: ROUTE:
  6. LANSOPRAZOLE [Concomitant]
     Active Substance: LANSOPRAZOLE
     Dosage: ADDITIONAL INFO: ROUTE:
  7. PREDNISOLONE [Concomitant]
     Active Substance: PREDNISOLONE
     Dosage: ADDITIONAL INFO: ROUTE:

REACTIONS (1)
  - Skin exfoliation [Recovered/Resolved]

NARRATIVE: CASE EVENT DATE: 20220226
